FAERS Safety Report 10094400 (Version 1)
Quarter: 2014Q2

REPORT INFORMATION
  Report Type: Spontaneous
  Country: NL (occurrence: NL)
  Receive Date: 20140422
  Receipt Date: 20140422
  Transmission Date: 20141212
  Serious: Yes (Other)
  Sender: FDA-Public Use
  Company Number: NL-JNJFOC-20140410543

PATIENT
  Age: 45 Year
  Sex: Male

DRUGS (1)
  1. KETOCONAZOLE [Suspect]
     Indication: BODY TINEA
     Route: 003
     Dates: start: 201312, end: 201312

REACTIONS (3)
  - Mycosis fungoides [Unknown]
  - Skin exfoliation [Recovered/Resolved]
  - Eczema [Recovered/Resolved]
